FAERS Safety Report 8600461 (Version 2)
Quarter: 2012Q4

REPORT INFORMATION
  Report Type: 
  Country: US (occurrence: US)
  Receive Date: 20120606
  Receipt Date: 20120917
  Transmission Date: 20130627
  Serious: Yes (Hospitalization)
  Sender: FDA-Public Use
  Company Number: US-BAYER-2012-055509

PATIENT
  Age: 41 Year
  Sex: Female
  Weight: 67.12 kg

DRUGS (16)
  1. YAZ [Suspect]
     Indication: CONTRACEPTION
     Dosage: UNK
     Dates: start: 20071026, end: 20110503
  2. YASMIN [Suspect]
     Indication: CONTRACEPTION
     Dosage: UNK
     Dates: start: 20060509, end: 20071025
  3. SYNTHROID [Concomitant]
     Indication: HYPOTHYROIDISM
     Dosage: 25 ?g, UNK
     Route: 048
     Dates: start: 2005, end: 20120407
  4. PROTONIX [Concomitant]
     Dosage: 40 mg, QD
     Route: 048
     Dates: start: 20051007, end: 20120407
  5. PROVIGIL [Concomitant]
     Indication: FATIGUE
     Dosage: every morning
     Route: 048
     Dates: start: 20071026, end: 20110503
  6. FENOFIBRATE [Concomitant]
     Indication: BLOOD CHOLESTEROL ABNORMAL
     Dosage: 134 mg, UNK
     Route: 048
     Dates: start: 20100917, end: 20120407
  7. FENOFIBRATE [Concomitant]
     Indication: BLOOD TRIGLYCERIDES ABNORMAL
  8. VENLAFAXINE [Concomitant]
     Indication: DEPRESSION
     Dosage: 75 mg, UNK
     Route: 048
     Dates: start: 20101021, end: 20110615
  9. PROPRANOLOL [Concomitant]
     Dosage: 16 mg, UNK
     Route: 048
     Dates: start: 20110314
  10. ONDANSETRON [Concomitant]
     Dosage: 4 mg, UNK
     Dates: start: 20110314
  11. EFFEXOR XR [Concomitant]
     Dosage: 75 mg, UNK
     Route: 048
     Dates: start: 20110416
  12. LORAZEPAM [Concomitant]
     Dosage: 2 mg, UNK
     Route: 048
     Dates: start: 20110419
  13. ACETAMINOPHEN W/OXYCODONE [Concomitant]
     Dosage: 10 and 650
     Route: 048
     Dates: start: 20110419
  14. ACYCLOVIR [ACICLOVIR] [Concomitant]
     Dosage: 400 mg, UNK
     Route: 048
     Dates: start: 20110419
  15. VITAMIN B12 [Concomitant]
     Dosage: UNK
     Dates: start: 20110503
  16. FISH OIL [Concomitant]
     Dosage: UNK
     Dates: start: 20110503

REACTIONS (7)
  - Pulmonary embolism [Recovered/Resolved]
  - Deep vein thrombosis [Recovered/Resolved]
  - Thrombophlebitis superficial [Recovered/Resolved]
  - Injury [None]
  - Pain [None]
  - Chest pain [Recovered/Resolved]
  - Muscle spasms [Recovered/Resolved]
